FAERS Safety Report 6662284-9 (Version None)
Quarter: 2010Q1

REPORT INFORMATION
  Report Type: 
  Country: None (occurrence: None)
  Receive Date: 20100331
  Receipt Date: 20100119
  Transmission Date: 20100710
  Serious: Yes (Other)
  Sender: FDA-Public Use
  Company Number: JP-GENENTECH-299730

PATIENT
  Age: 53 Year
  Sex: Male

DRUGS (1)
  1. ACTIVASE [Suspect]
     Indication: RETINAL VEIN OCCLUSION

REACTIONS (2)
  - DISEASE RECURRENCE [None]
  - MACULAR OEDEMA [None]
